FAERS Safety Report 18778921 (Version 1)
Quarter: 2021Q1

REPORT INFORMATION
  Report Type: Spontaneous
  Country: US (occurrence: US)
  Receive Date: 20210124
  Receipt Date: 20210124
  Transmission Date: 20210419
  Serious: No
  Sender: FDA-Public Use
  Company Number: US-TEVA-2021-US-1870358

PATIENT
  Age: 3 Year
  Sex: Male

DRUGS (1)
  1. ALBUTEROL SULFATE HFA [Suspect]
     Active Substance: ALBUTEROL SULFATE
     Indication: ASTHMA
     Route: 065

REACTIONS (2)
  - Therapeutic product effect incomplete [Unknown]
  - Product administered to patient of inappropriate age [Unknown]
